FAERS Safety Report 7527036-6 (Version None)
Quarter: 2011Q2

REPORT INFORMATION
  Report Type: 
  Country: None (occurrence: None)
  Receive Date: 20110606
  Receipt Date: 20110602
  Transmission Date: 20111010
  Serious: Yes (Hospitalization, Other)
  Sender: FDA-Public Use
  Company Number: US-ABBOTT-11P-163-0729205-00

PATIENT
  Sex: Male
  Weight: 103.06 kg

DRUGS (7)
  1. NIASPAN [Suspect]
     Indication: BLOOD CHOLESTEROL INCREASED
     Dosage: 1000MG AT BEDTIME
     Dates: start: 20030501
  2. ASPIRIN [Concomitant]
     Indication: CARDIOVASCULAR DISORDER
  3. OMEPRAZOLE [Concomitant]
     Indication: GASTROOESOPHAGEAL REFLUX DISEASE
  4. METFORMIN HCL [Concomitant]
     Indication: DIABETES MELLITUS
  5. LIPITOR [Concomitant]
     Indication: BLOOD CHOLESTEROL INCREASED
  6. NITROGLYCERIN [Concomitant]
     Indication: CHEST PAIN
     Route: 060
  7. CARVEDILOL [Concomitant]
     Indication: HEART RATE

REACTIONS (11)
  - FATIGUE [None]
  - UMBILICAL HERNIA PERFORATION [None]
  - CORONARY ARTERY BYPASS [None]
  - POST PROCEDURAL COMPLICATION [None]
  - SCAR [None]
  - INCISION SITE COMPLICATION [None]
  - ATRIAL FIBRILLATION [None]
  - RIB FRACTURE [None]
  - MUSCULOSKELETAL PAIN [None]
  - FLUSHING [None]
  - DYSPNOEA [None]
